FAERS Safety Report 5005055-1 (Version None)
Quarter: 2006Q2

REPORT INFORMATION
  Report Type: 
  Country: None (occurrence: None)
  Receive Date: 20060516
  Receipt Date: 20060516
  Transmission Date: 20061013
  Serious: Yes (Other)
  Sender: FDA-Public Use
  Company Number: None

PATIENT
  Sex: Male
  Weight: 83.0083 kg

DRUGS (5)
  1. LENALIDOMIDE    10MG     CELGENE CORP [Suspect]
     Indication: PROSTATE CANCER
     Dosage: 10MG QD  PO
     Route: 048
     Dates: start: 20051117, end: 20060511
  2. PREDNISONE TAB [Concomitant]
  3. DECADRON SRC [Concomitant]
  4. TAXOTERE [Concomitant]
  5. ZOLADEX [Concomitant]

REACTIONS (1)
  - DEEP VEIN THROMBOSIS [None]
